FAERS Safety Report 8815823 (Version 1)
Quarter: 2012Q4

REPORT INFORMATION
  Report Type: 
  Country: GB (occurrence: GB)
  Receive Date: 20120928
  Receipt Date: 20120928
  Transmission Date: 20130627
  Serious: Yes (Disabling, Other)
  Sender: FDA-Public Use
  Company Number: GB-B.I. PHARMACEUTICALS,INC./RIDGEFIELD-2012-UK-01244UK

PATIENT
  Age: 68 Year
  Sex: Male

DRUGS (6)
  1. DABIGATRAN [Suspect]
     Indication: ATRIAL FIBRILLATION
     Dosage: 110mg 2/1 days
     Route: 048
     Dates: start: 20120817, end: 20120904
  2. LIPITOR [Concomitant]
     Dosage: 10 mg
     Route: 048
  3. LORATADINE [Concomitant]
     Indication: SEASONAL ALLERGY
     Dosage: 10 mg
     Route: 048
  4. SERETIDE 500 ACCUHALER [Concomitant]
     Dosage: 1 df 2/1 day
  5. PREDNISOLONE [Concomitant]
     Indication: CHRONIC OBSTRUCTIVE PULMONARY DISEASE
     Dosage: 30 mg
     Route: 048
     Dates: start: 20120829, end: 20120904
  6. TIOTROPIUM BROMIDE [Concomitant]
     Dosage: 18 mcg
     Route: 055

REACTIONS (5)
  - Arrhythmia [Recovered/Resolved]
  - Chest pain [Recovered/Resolved]
  - Malaise [Recovered/Resolved]
  - Headache [Recovered/Resolved]
  - Pain in extremity [Recovered/Resolved]
